FAERS Safety Report 7772745-7 (Version None)
Quarter: 2011Q3

REPORT INFORMATION
  Report Type: 
  Country: None (occurrence: None)
  Receive Date: 20110922
  Receipt Date: 20101028
  Transmission Date: 20111222
  Serious: No
  Sender: FDA-Public Use
  Company Number: US-ASTRAZENECA-2010SE51862

PATIENT
  Age: 52 Month
  Sex: Female

DRUGS (5)
  1. SEROQUEL [Suspect]
     Route: 048
     Dates: end: 20100901
  2. SABRIL [Suspect]
     Indication: CONVULSION
     Route: 048
     Dates: start: 20100330, end: 20101012
  3. RITALIN [Suspect]
     Route: 048
     Dates: end: 20100901
  4. SABRIL [Suspect]
     Route: 048
     Dates: start: 20101012
  5. TOPAMAX [Concomitant]
     Dates: start: 20100901

REACTIONS (2)
  - AGGRESSION [None]
  - IRRITABILITY [None]
